FAERS Safety Report 10055469 (Version 1)
Quarter: 2014Q2

REPORT INFORMATION
  Report Type: Spontaneous
  Country: US (occurrence: US)
  Receive Date: 20140403
  Receipt Date: 20140403
  Transmission Date: 20141212
  Serious: No
  Sender: FDA-Public Use
  Company Number: US-BIOGENIDEC-2014BI031441

PATIENT
  Age: 56 Year
  Sex: Female

DRUGS (1)
  1. TYSABRI [Suspect]
     Indication: MULTIPLE SCLEROSIS
     Route: 042
     Dates: start: 20130328

REACTIONS (4)
  - Lung disorder [Not Recovered/Not Resolved]
  - Mobility decreased [Recovered/Resolved]
  - Traumatic lung injury [Not Recovered/Not Resolved]
  - Pneumothorax [Not Recovered/Not Resolved]
